FAERS Safety Report 5164504-9 (Version None)
Quarter: 2006Q4

REPORT INFORMATION
  Report Type: 
  Country: None (occurrence: None)
  Receive Date: 20061127
  Receipt Date: 20060919
  Transmission Date: 20070319
  Serious: Yes (Death, Other)
  Sender: FDA-Public Use
  Company Number: 2006SP002408

PATIENT
  Age: 82 Year
  Sex: Female

DRUGS (2)
  1. K-DUR 10 [Suspect]
     Indication: DRUG USE FOR UNKNOWN INDICATION
     Dosage: 20 MEQ; PO
     Route: 048
  2. ISOSORBIDE MONONITRATE (S-P) [Suspect]
     Indication: DRUG USE FOR UNKNOWN INDICATION
     Dosage: 60 MG; PO
     Route: 048

REACTIONS (1)
  - DEATH [None]
